FAERS Safety Report 21517355 (Version 10)
Quarter: 2023Q4

REPORT INFORMATION
  Report Type: Other
  Country: DE (occurrence: None)
  Receive Date: 20221028
  Receipt Date: 20231218
  Transmission Date: 20240110
  Serious: No
  Sender: FDA-Public Use
  Company Number: DE-ROCHE-2886686

PATIENT
  Age: 46 Year
  Sex: Female

DRUGS (15)
  1. OCREVUS [Suspect]
     Active Substance: OCRELIZUMAB
     Indication: Relapsing-remitting multiple sclerosis
     Dosage: 201 DAYS, 600MG
     Route: 042
     Dates: start: 20210723
  2. OCREVUS [Suspect]
     Active Substance: OCRELIZUMAB
     Dosage: SECOND INITIAL DOSE
     Route: 042
     Dates: start: 20210806
  3. OCREVUS [Suspect]
     Active Substance: OCRELIZUMAB
     Route: 042
  4. OCREVUS [Suspect]
     Active Substance: OCRELIZUMAB
     Route: 042
  5. OCREVUS [Suspect]
     Active Substance: OCRELIZUMAB
     Route: 042
  6. JARDIANCE [Suspect]
     Active Substance: EMPAGLIFLOZIN
     Indication: Product used for unknown indication
     Route: 065
  7. PREGABALIN [Suspect]
     Active Substance: PREGABALIN
     Indication: Product used for unknown indication
     Route: 048
  8. RAMIPRIL [Concomitant]
     Active Substance: RAMIPRIL
  9. DIMETHINDENE [Concomitant]
     Active Substance: DIMETHINDENE
  10. AMLODIPINE [Concomitant]
     Active Substance: AMLODIPINE BESYLATE
  11. ESCITALOPRAM [Concomitant]
     Active Substance: ESCITALOPRAM OXALATE
  12. LAXANS [Concomitant]
     Dosage: 7.5 MG/ML AS NEEDED
  13. NABIXIMOLS [Concomitant]
     Active Substance: NABIXIMOLS
     Dosage: SPRAY 2 PUFFS IN THE MORNING AND 4 PUFFS IN THE EVENING?SATIVEX (0-0-1 PUFF)
  14. BACLOFEN [Concomitant]
     Active Substance: BACLOFEN
     Dosage: 1/2-0-1?BACLOFEN 5 MG (1-0-2)
  15. METFORMIN [Concomitant]
     Active Substance: METFORMIN HYDROCHLORIDE

REACTIONS (15)
  - Dyspnoea [Recovered/Resolved]
  - Fatigue [Recovered/Resolved]
  - Pain in extremity [Recovering/Resolving]
  - Hypoaesthesia [Recovered/Resolved]
  - Muscle spasticity [Recovered/Resolved]
  - Cystitis noninfective [Recovered/Resolved]
  - Hyperhidrosis [Recovered/Resolved]
  - Oropharyngeal pain [Recovered/Resolved]
  - Malaise [Recovered/Resolved]
  - COVID-19 [Recovered/Resolved]
  - Productive cough [Recovered/Resolved]
  - Blood glucose increased [Recovered/Resolved]
  - Polyuria [Recovered/Resolved]
  - Fall [Unknown]
  - Mental impairment [Recovered/Resolved]

NARRATIVE: CASE EVENT DATE: 20210723
